FAERS Safety Report 9199860 (Version 5)
Quarter: 2013Q3

REPORT INFORMATION
  Report Type: Spontaneous
  Country: US (occurrence: US)
  Receive Date: 20130329
  Receipt Date: 20130904
  Transmission Date: 20140515
  Serious: Yes (Hospitalization, Other)
  Sender: FDA-Public Use
  Company Number: US-009507513-1303USA011348

PATIENT
  Sex: Female
  Weight: 68.27 kg

DRUGS (2)
  1. NUVARING [Suspect]
     Indication: CONTRACEPTION
     Dosage: UNK
     Route: 067
     Dates: start: 20070130, end: 20110321
  2. VITAMINS (UNSPECIFIED) [Concomitant]
     Route: 048

REACTIONS (7)
  - Pleural effusion [Unknown]
  - Pulmonary embolism [Unknown]
  - Antiphospholipid antibodies [Unknown]
  - Hilar lymphadenopathy [Unknown]
  - Pyrexia [Unknown]
  - Pulmonary infarction [Unknown]
  - Tricuspid valve incompetence [Unknown]
